FAERS Safety Report 9373532 (Version 1)
Quarter: 2013Q2

REPORT INFORMATION
  Report Type: Spontaneous
  Country: JM (occurrence: JM)
  Receive Date: 20130627
  Receipt Date: 20130627
  Transmission Date: 20140414
  Serious: Yes (Death, Hospitalization)
  Sender: FDA-Public Use
  Company Number: PHHY2013JM066099

PATIENT
  Age: 25 Year
  Sex: Male
  Weight: 72.56 kg

DRUGS (2)
  1. TEGRETOL CR [Suspect]
     Indication: SCHIZOAFFECTIVE DISORDER
     Dosage: 400 MG, BID
     Route: 048
     Dates: start: 2008, end: 2010
  2. RISPERIDONE [Concomitant]

REACTIONS (6)
  - Cellulitis [Fatal]
  - Septic shock [Fatal]
  - Stevens-Johnson syndrome [Unknown]
  - Rash erythematous [Unknown]
  - Skin exfoliation [Unknown]
  - Rash pustular [Unknown]
